FAERS Safety Report 9651483 (Version 4)
Quarter: 2014Q1

REPORT INFORMATION
  Report Type: Report from Study
  Country: US (occurrence: US)
  Receive Date: 20131029
  Receipt Date: 20140108
  Transmission Date: 20141002
  Serious: Yes (Hospitalization, Other)
  Sender: FDA-Public Use
  Company Number: US-JNJFOC-20131011771

PATIENT
  Age: 85 Year
  Sex: Female

DRUGS (16)
  1. XARELTO [Suspect]
     Indication: CEREBROVASCULAR ACCIDENT PROPHYLAXIS
     Route: 048
     Dates: start: 20130516
  2. XARELTO [Suspect]
     Indication: CEREBROVASCULAR ACCIDENT PROPHYLAXIS
     Route: 048
     Dates: start: 201302, end: 20130428
  3. XARELTO [Suspect]
     Indication: ATRIAL FIBRILLATION
     Route: 048
     Dates: start: 20130516
  4. XARELTO [Suspect]
     Indication: ATRIAL FIBRILLATION
     Route: 048
     Dates: start: 201302, end: 20130428
  5. GABAPENTIN [Concomitant]
     Route: 065
  6. PREDNISONE [Concomitant]
     Route: 048
  7. OMEPRAZOLE [Concomitant]
     Route: 048
  8. COQ10 [Concomitant]
     Route: 048
  9. HYDROCODONE ACETAMINOPHEN [Concomitant]
     Dosage: 10 MG/325 MG EVERY 6 HOUR, P.R.N. DAILY
     Route: 048
  10. MULTIVITAMINS [Concomitant]
     Route: 048
  11. FISH OIL [Concomitant]
     Route: 048
  12. CALCIUM W/VITAMIN D [Concomitant]
     Route: 048
  13. SODIUM CHLORIDE [Concomitant]
     Route: 048
  14. DILTIAZEM [Concomitant]
     Route: 048
  15. LUNESTA [Concomitant]
     Route: 048
  16. METOPROLOL [Concomitant]
     Route: 048

REACTIONS (12)
  - Haemorrhage [Recovered/Resolved]
  - Arteriosclerosis [Unknown]
  - Thrombosis [Not Recovered/Not Resolved]
  - Investigation [Recovered/Resolved]
  - Fall [Recovered/Resolved]
  - Haematoma [Unknown]
  - Adverse drug reaction [Unknown]
  - Blood pressure decreased [Not Recovered/Not Resolved]
  - Oedema peripheral [Recovering/Resolving]
  - Syncope [Recovering/Resolving]
  - Hyponatraemia [Recovering/Resolving]
  - Inappropriate schedule of drug administration [Not Recovered/Not Resolved]
